FAERS Safety Report 7926162 (Version 3)
Quarter: 2013Q3

REPORT INFORMATION
  Report Type: Spontaneous
  Country: US (occurrence: US)
  Receive Date: 20110502
  Receipt Date: 20130920
  Transmission Date: 20140515
  Serious: Yes (Other)
  Sender: FDA-Public Use
  Company Number: US-ASTRAZENECA-2010SE48249

PATIENT
  Age: 73 Year
  Sex: Female
  Weight: 63.5 kg

DRUGS (7)
  1. NEXIUM [Suspect]
     Indication: ULCER
     Route: 048
  2. NEXIUM [Suspect]
     Indication: GASTROOESOPHAGEAL REFLUX DISEASE
     Route: 048
  3. NEXIUM [Suspect]
     Indication: GASTRIC DISORDER
     Route: 048
  4. NEXIUM [Suspect]
     Indication: ULCER
     Route: 048
  5. NEXIUM [Suspect]
     Indication: GASTROOESOPHAGEAL REFLUX DISEASE
     Route: 048
  6. NEXIUM [Suspect]
     Indication: GASTRIC DISORDER
     Route: 048
  7. CRESTOR [Concomitant]

REACTIONS (13)
  - Convulsion [Unknown]
  - Hip fracture [Unknown]
  - Regurgitation [Unknown]
  - Aphagia [Unknown]
  - Weight decreased [Not Recovered/Not Resolved]
  - Body height decreased [Unknown]
  - Mitral valve prolapse [Unknown]
  - Blood pressure abnormal [Unknown]
  - Blood electrolytes abnormal [Unknown]
  - Nausea [Unknown]
  - Intentional drug misuse [Unknown]
  - Intentional drug misuse [Unknown]
  - Drug dose omission [Unknown]
